FAERS Safety Report 7178894-9 (Version None)
Quarter: 2010Q4

REPORT INFORMATION
  Report Type: 
  Country: None (occurrence: None)
  Receive Date: 20101217
  Receipt Date: 20101217
  Transmission Date: 20110411
  Serious: Yes (Hospitalization)
  Sender: FDA-Public Use
  Company Number: None

PATIENT
  Age: 46 Year
  Sex: Female
  Weight: 72.9 kg

DRUGS (3)
  1. FILGRASTIM [Suspect]
     Indication: BLOOD STEM CELL HARVEST
     Dosage: 780MCG DAILY INTRAMUSCULAR
     Route: 030
     Dates: start: 20101112, end: 20101117
  2. ESCITALOPRAM [Concomitant]
  3. ESTRADIOL [Concomitant]

REACTIONS (4)
  - ABDOMINAL DISTENSION [None]
  - ABDOMINAL PAIN [None]
  - ABDOMINAL PAIN UPPER [None]
  - VOMITING [None]
